FAERS Safety Report 7062074-1 (Version None)
Quarter: 2010Q4

REPORT INFORMATION
  Report Type: 
  Country: None (occurrence: None)
  Receive Date: 20101026
  Receipt Date: 20101022
  Transmission Date: 20110411
  Serious: Yes (Hospitalization, Congenital Anomaly)
  Sender: FDA-Public Use
  Company Number: B0680743A

PATIENT
  Sex: Female

DRUGS (3)
  1. LAMICTAL [Suspect]
     Indication: EPILEPSY
     Dosage: 100MG PER DAY
     Dates: start: 20090101, end: 20100725
  2. ASPEGIC 1000 [Suspect]
     Indication: PROTEIN S DEFICIENCY
     Dosage: 100MG PER DAY
     Dates: end: 20100725
  3. LOVENOX [Suspect]
     Indication: PROTEIN S DEFICIENCY
     Dosage: 4000IU PER DAY
     Dates: end: 20100825

REACTIONS (2)
  - ANAL ATRESIA [None]
  - DRUG EXPOSURE DURING PREGNANCY [None]
